FAERS Safety Report 4470579-2 (Version None)
Quarter: 2004Q4

REPORT INFORMATION
  Report Type: 
  Country: None (occurrence: None)
  Receive Date: 20041001
  Receipt Date: 20040916
  Transmission Date: 20050328
  Serious: Yes (Life-Threatening, Other)
  Sender: FDA-Public Use
  Company Number: C2003-1822.09

PATIENT
  Age: 47 Year
  Sex: Female

DRUGS (6)
  1. CYSTAGON [Suspect]
     Dosage: A FEW WEEKS
     Dates: start: 19800101
  2. CYCLOSPORINE [Concomitant]
  3. PREDNISONE [Concomitant]
  4. VERAPAMIL [Concomitant]
  5. ATORVASTATIN CALCIUM [Concomitant]
  6. TRIVORA-21 [Concomitant]

REACTIONS (2)
  - DRUG INTOLERANCE [None]
  - INTRACRANIAL PRESSURE INCREASED [None]
